FAERS Safety Report 25080940 (Version 2)
Quarter: 2025Q3

REPORT INFORMATION
  Report Type: Spontaneous
  Country: EU (occurrence: EU)
  Receive Date: 20250315
  Receipt Date: 20250719
  Transmission Date: 20251020
  Serious: Yes (Hospitalization, Other)
  Sender: AUROBINDO
  Company Number: EU-AFSSAPS-DJ2025000252

PATIENT
  Age: 65 Year
  Sex: Male
  Weight: 72 kg

DRUGS (10)
  1. LEVOFLOXACIN [Suspect]
     Active Substance: LEVOFLOXACIN
     Indication: Endocarditis
     Dosage: 500 MILLIGRAM, ONCE A DAY (500MG/DAY)
     Route: 048
     Dates: start: 20250106, end: 20250127
  2. FUROSEMIDE [Suspect]
     Active Substance: FUROSEMIDE
     Indication: Oedema due to cardiac disease
     Dosage: 20 MILLIGRAM, ONCE A DAY (20MG/DAY)
     Route: 048
     Dates: start: 20241129
  3. RAMIPRIL [Suspect]
     Active Substance: RAMIPRIL
     Indication: Hypertension
     Dosage: 1.25 MILLIGRAM, ONCE A DAY (1.25MG/DAY)
     Route: 048
     Dates: start: 20250109
  4. PANTOPRAZOLE [Suspect]
     Active Substance: PANTOPRAZOLE
     Indication: Gastrooesophageal reflux disease
     Dosage: 20 MILLIGRAM, ONCE A DAY (20MG/DAY)
     Route: 048
     Dates: start: 20241211
  5. ASPIRIN [Concomitant]
     Active Substance: ASPIRIN
     Indication: Vascular disorder prophylaxis
     Dosage: 100 MILLIGRAM, ONCE A DAY ( 100MG/DAY)
     Route: 048
     Dates: start: 20241211
  6. WARFARIN SODIUM [Concomitant]
     Active Substance: WARFARIN SODIUM
     Indication: Prophylaxis
     Dosage: 5 MILLIGRAM, ONCE A DAY (5 MG/DAY)
     Route: 065
     Dates: start: 20241223
  7. ALDACTONE [Concomitant]
     Active Substance: SPIRONOLACTONE
     Indication: Hypertension
     Dosage: 25 MILLIGRAM, ONCE A DAY (25MG/DAY)
     Route: 048
     Dates: start: 20241223
  8. FUROSEMIDE [Concomitant]
     Active Substance: FUROSEMIDE
     Indication: Oedema due to cardiac disease
     Dosage: 20 MILLIGRAM, ONCE A DAY
     Route: 048
     Dates: start: 20241129
  9. PANTOPRAZOLE [Concomitant]
     Active Substance: PANTOPRAZOLE
     Indication: Gastrooesophageal reflux disease
     Dosage: 20 MILLIGRAM, ONCE A DAY
     Route: 048
     Dates: start: 20241211
  10. RAMIPRIL [Concomitant]
     Active Substance: RAMIPRIL
     Indication: Hypertension
     Dosage: 1.25 MILLIGRAM, ONCE A DAY
     Route: 048
     Dates: start: 20250109

REACTIONS (1)
  - Autoimmune haemolytic anaemia [Recovered/Resolved]

NARRATIVE: CASE EVENT DATE: 20250124
